FAERS Safety Report 4552585-2 (Version None)
Quarter: 2005Q1

REPORT INFORMATION
  Report Type: 
  Country: None (occurrence: None)
  Receive Date: 20050114
  Receipt Date: 20041011
  Transmission Date: 20050727
  Serious: No
  Sender: FDA-Public Use
  Company Number: US-GLAXOSMITHKLINE-A0529333A

PATIENT
  Age: 34 Year
  Sex: Male
  Weight: 97.7 kg

DRUGS (1)
  1. IMITREX [Suspect]
     Indication: MIGRAINE
     Dosage: 1INJ AS REQUIRED
     Route: 030

REACTIONS (2)
  - HEADACHE [None]
  - MEDICATION ERROR [None]
